FAERS Safety Report 20094807 (Version 1)
Quarter: 2021Q4

REPORT INFORMATION
  Report Type: Spontaneous
  Country: BR (occurrence: BR)
  Receive Date: 20211122
  Receipt Date: 20211122
  Transmission Date: 20220303
  Serious: Yes (Death, Hospitalization, Other)
  Sender: FDA-Public Use
  Company Number: BR-NOVOPROD-868142

PATIENT
  Age: 65 Year
  Sex: Male
  Weight: 79.5 kg

DRUGS (7)
  1. FIASP [Suspect]
     Active Substance: INSULIN ASPART
     Indication: Product used for unknown indication
     Dosage: FS OF 70
     Route: 065
  2. TRESIBA [Suspect]
     Active Substance: INSULIN DEGLUDEC
     Indication: Product used for unknown indication
  3. TRESIBA [Suspect]
     Active Substance: INSULIN DEGLUDEC
     Dosage: TRESIBA 22
     Route: 065
  4. EZETIMIBE\ROSUVASTATIN [Concomitant]
     Active Substance: EZETIMIBE\ROSUVASTATIN
     Dosage: ROSUVASTATIN 10 MG+ EZETIMIBE 10 MG
     Route: 065
  5. EMPAGLIFLOZIN [Concomitant]
     Active Substance: EMPAGLIFLOZIN
     Dosage: 25 MG, QD
     Route: 065
  6. AMLODIPINE [Concomitant]
     Active Substance: AMLODIPINE BESYLATE
     Dosage: 5 MG, QD
     Route: 065
  7. LOSARTAN [Concomitant]
     Active Substance: LOSARTAN
     Dosage: 50 MG, QD
     Route: 065

REACTIONS (7)
  - Death [Fatal]
  - Atrioventricular block [Unknown]
  - Atrioventricular block [Unknown]
  - Arteriosclerosis [Unknown]
  - Glycosylated haemoglobin increased [Unknown]
  - Hyperglycaemia [Unknown]
  - Blood glucose fluctuation [Unknown]

NARRATIVE: CASE EVENT DATE: 20210801
